FAERS Safety Report 4712031-2 (Version None)
Quarter: 2005Q2

REPORT INFORMATION
  Report Type: 
  Country: None (occurrence: None)
  Receive Date: 20050629
  Receipt Date: 20050407
  Transmission Date: 20051028
  Serious: No
  Sender: FDA-Public Use
  Company Number: 05P-163-0296879-00

PATIENT
  Age: 61 Year
  Sex: Female

DRUGS (5)
  1. HUMIRA [Suspect]
     Indication: RHEUMATOID ARTHRITIS
     Dosage: 40 MG, 1 IN 2 WK, SUBCUTANEOUS
     Route: 058
     Dates: start: 20030101
  2. PREDNISONE [Concomitant]
  3. IBUPROFEN [Concomitant]
  4. COSOPT [Concomitant]
  5. LATANOPROST [Concomitant]

REACTIONS (3)
  - CATARACT [None]
  - GLAUCOMA [None]
  - WEIGHT INCREASED [None]
